FAERS Safety Report 5313029-6 (Version None)
Quarter: 2007Q2

REPORT INFORMATION
  Report Type: 
  Country: None (occurrence: None)
  Receive Date: 20070430
  Receipt Date: 20070418
  Transmission Date: 20071010
  Serious: No
  Sender: FDA-Public Use
  Company Number: FR-PFIZER INC-2007019907

PATIENT
  Sex: Male
  Weight: 23.7 kg

DRUGS (1)
  1. GENOTROPIN [Suspect]
     Indication: GROWTH HORMONE DEFICIENCY

REACTIONS (1)
  - NO ADVERSE EFFECT [None]
